FAERS Safety Report 5128256-0 (Version None)
Quarter: 2006Q4

REPORT INFORMATION
  Report Type: 
  Country: None (occurrence: None)
  Receive Date: 20061011
  Receipt Date: 20060928
  Transmission Date: 20070319
  Serious: Yes (Hospitalization)
  Sender: FDA-Public Use
  Company Number: 2006108995

PATIENT
  Age: 85 Year
  Sex: Male

DRUGS (6)
  1. ZYVOX [Suspect]
     Indication: PNEUMONIA STAPHYLOCOCCAL
     Dosage: 1200 MG (600 MG, 2 IN 1 D), INTRAVENOUS
     Route: 042
     Dates: start: 20060817, end: 20060828
  2. FAMOTIDINE [Suspect]
     Dosage: 20 MG (20 MG), INTRAVENOUS
     Route: 042
     Dates: start: 20060804, end: 20060901
  3. TARGOCID [Concomitant]
  4. THIAMINE (THIAMINE) [Concomitant]
  5. FINIBAX (DORIPENEM) [Concomitant]
  6. HOKUNALIN (TULOBUTEROL HYDROCHLORIDE) [Concomitant]

REACTIONS (4)
  - FLUID OVERLOAD [None]
  - HAEMODILUTION [None]
  - HYPONATRAEMIA [None]
  - PLATELET COUNT DECREASED [None]
